FAERS Safety Report 18677463 (Version 1)
Quarter: 2020Q4

REPORT INFORMATION
  Report Type: Report from Study
  Country: PH (occurrence: PH)
  Receive Date: 20201229
  Receipt Date: 20201229
  Transmission Date: 20210114
  Serious: Yes (Hospitalization)
  Sender: FDA-Public Use
  Company Number: PHHY2019PH190949

PATIENT
  Sex: Male

DRUGS (15)
  1. ENTRESTO [Suspect]
     Active Substance: SACUBITRIL\VALSARTAN
     Dosage: 0.5 DF (200 MG), BID (1/2 TAB 2X A DAY)
     Route: 048
     Dates: start: 20191016
  2. FUROSEMIDE. [Concomitant]
     Active Substance: FUROSEMIDE
     Indication: CARDIAC FAILURE
     Dosage: 40 MG, QD
     Route: 065
  3. SPIRONOLACTONE. [Concomitant]
     Active Substance: SPIRONOLACTONE
     Indication: CARDIAC DISORDER
     Dosage: 25 MG, QOD
     Route: 065
  4. ENTRESTO [Suspect]
     Active Substance: SACUBITRIL\VALSARTAN
     Indication: PRODUCT USED FOR UNKNOWN INDICATION
     Dosage: 0.5 DF (100 MG), BID (HALF TABLET TWICE A DAY)
     Route: 048
     Dates: start: 20190703
  5. ENTRESTO [Suspect]
     Active Substance: SACUBITRIL\VALSARTAN
     Dosage: 0.5 DF (200 MG), BID (1/2 TAB 2X A DAY)
     Route: 048
     Dates: start: 20191113
  6. ZYKAST [Concomitant]
     Indication: RHINITIS ALLERGIC
     Dosage: 1 DF (5/10 MG), QD
     Route: 065
  7. ENTRESTO [Suspect]
     Active Substance: SACUBITRIL\VALSARTAN
     Dosage: 0.5 DF (200 MG), BID (1/2 TAB 2X A DAY)
     Route: 048
     Dates: start: 20200108
  8. ENTRESTO [Suspect]
     Active Substance: SACUBITRIL\VALSARTAN
     Dosage: 50 MG, BID
     Route: 048
  9. FEBUXOSTAT. [Concomitant]
     Active Substance: FEBUXOSTAT
     Indication: BLOOD URIC ACID ABNORMAL
     Dosage: 40 MG, QOD
     Route: 065
  10. ENTRESTO [Suspect]
     Active Substance: SACUBITRIL\VALSARTAN
     Dosage: 0.5 DF (200 MG), BID (1/2 TAB 2X A DAY)
     Route: 048
     Dates: start: 20191023
  11. RIVAROXABAN [Concomitant]
     Active Substance: RIVAROXABAN
     Indication: CEREBROVASCULAR ACCIDENT
     Dosage: 0.5 DF (20 MG), QD
     Route: 065
  12. DIGOXIN. [Concomitant]
     Active Substance: DIGOXIN
     Indication: CARDIAC FAILURE
     Dosage: 0.5 DF(0.25 MG), QD
     Route: 065
  13. ENTRESTO [Suspect]
     Active Substance: SACUBITRIL\VALSARTAN
     Dosage: 0.5 DF (100 MG), BID (HALF TABLET TWICE A DAY)
     Route: 048
     Dates: start: 20190809
  14. ENTRESTO [Suspect]
     Active Substance: SACUBITRIL\VALSARTAN
     Dosage: 0.5 DF (100 MG), BID (HALF TABLET TWICE A DAY)
     Route: 048
     Dates: start: 20200412
  15. ENTRESTO [Suspect]
     Active Substance: SACUBITRIL\VALSARTAN
     Dosage: 0.5 DF (200 MG), BID (1/2 TAB 2X A DAY)
     Route: 048
     Dates: start: 20200103

REACTIONS (4)
  - Wrong technique in product usage process [Unknown]
  - Cardiac disorder [Unknown]
  - Lung disorder [Unknown]
  - Renal impairment [Unknown]
